FAERS Safety Report 6123176-7 (Version None)
Quarter: 2009Q1

REPORT INFORMATION
  Report Type: 
  Country: None (occurrence: None)
  Receive Date: 20090318
  Receipt Date: 20090311
  Transmission Date: 20090719
  Serious: Yes (Life-Threatening, Hospitalization)
  Sender: FDA-Public Use
  Company Number: CN-JNJFOC-20090302957

PATIENT
  Age: 6 Year
  Sex: Female

DRUGS (4)
  1. CHILDREN'S MOTRIN [Suspect]
     Route: 048
  2. CHILDREN'S MOTRIN [Suspect]
     Indication: PYREXIA
     Route: 048
  3. PENICILLIN [Suspect]
     Indication: NASOPHARYNGITIS
     Route: 030
  4. UNSPECIFIED MEDICATION [Suspect]
     Indication: PYREXIA
     Route: 030

REACTIONS (8)
  - ANAPHYLACTIC SHOCK [None]
  - CARDIAC FAILURE [None]
  - COMA [None]
  - ELECTROLYTE IMBALANCE [None]
  - GASTROINTESTINAL HAEMORRHAGE [None]
  - KETOSIS [None]
  - PNEUMONIA [None]
  - RESPIRATORY FAILURE [None]
